FAERS Safety Report 4594383-X (Version None)
Quarter: 2005Q1

REPORT INFORMATION
  Report Type: 
  Country: None (occurrence: None)
  Receive Date: 20050301
  Receipt Date: 20041215
  Transmission Date: 20050727
  Serious: No
  Sender: FDA-Public Use
  Company Number: US-GLAXOSMITHKLINE-A0537443A

PATIENT
  Age: 50 Year
  Sex: Female

DRUGS (9)
  1. VALTREX [Suspect]
     Dosage: 1000MG TWICE PER DAY
     Route: 048
     Dates: start: 20040501
  2. FLONASE [Concomitant]
  3. SEREVENT [Concomitant]
  4. CARDIZEM [Concomitant]
  5. ENALAPRIL [Concomitant]
  6. PROTONIX [Concomitant]
  7. ALBUTEROL [Concomitant]
  8. AZMACORT [Concomitant]
  9. CELEBREX [Concomitant]

REACTIONS (1)
  - ACCIDENTAL OVERDOSE [None]
